FAERS Safety Report 25231947 (Version 2)
Quarter: 2025Q2

REPORT INFORMATION
  Report Type: Report from Study
  Country: CA (occurrence: CA)
  Receive Date: 20250423
  Receipt Date: 20250430
  Transmission Date: 20250716
  Serious: Yes (Hospitalization)
  Sender: DAIICHI
  Company Number: CA-DSJP-DS-2025-137205-CA

PATIENT
  Sex: Male
  Weight: 40.7 kg

DRUGS (4)
  1. DATOPOTAMAB DERUXTECAN [Suspect]
     Active Substance: DATOPOTAMAB DERUXTECAN
     Indication: Lung cancer metastatic
     Dosage: 248 MG, ONCE EVERY 3 WK
     Route: 042
     Dates: start: 20241210, end: 20250328
  2. DATOPOTAMAB DERUXTECAN [Suspect]
     Active Substance: DATOPOTAMAB DERUXTECAN
     Route: 065
     Dates: start: 20250408
  3. OSIMERTINIB [Concomitant]
     Active Substance: OSIMERTINIB
     Indication: Lung cancer metastatic
     Dosage: 80 MG, BID
     Route: 048
     Dates: start: 202309
  4. DALTEPARIN [Concomitant]
     Active Substance: DALTEPARIN
     Indication: Deep vein thrombosis
     Dosage: 7500 UNITS, BID
     Route: 058
     Dates: start: 20240527

REACTIONS (1)
  - Pneumonia [Recovered/Resolved]

NARRATIVE: CASE EVENT DATE: 20250410
